FAERS Safety Report 8266445-7 (Version None)
Quarter: 2012Q2

REPORT INFORMATION
  Report Type: 
  Country: None (occurrence: None)
  Receive Date: 20120406
  Receipt Date: 20120329
  Transmission Date: 20120825
  Serious: Yes (Hospitalization, Other)
  Sender: FDA-Public Use
  Company Number: US-MERCK-1109USA00848

PATIENT
  Age: 75 Year
  Sex: Female
  Weight: 64 kg

DRUGS (12)
  1. CALCIUM (UNSPECIFIED) [Concomitant]
     Indication: OSTEOPOROSIS
     Route: 065
  2. FOSAMAX [Suspect]
     Indication: OSTEOPOROSIS
     Route: 048
     Dates: start: 19950101, end: 20000101
  3. ASPIRIN [Concomitant]
     Route: 048
  4. VITAMIN D (UNSPECIFIED) [Concomitant]
     Indication: OSTEOPOROSIS
     Route: 065
  5. FORTEO [Concomitant]
     Indication: OSTEOPOROSIS
     Route: 051
     Dates: start: 20030101, end: 20050101
  6. FOSAMAX [Suspect]
     Route: 048
     Dates: start: 20000101, end: 20030801
  7. FOSAMAX PLUS D [Suspect]
     Indication: OSTEOPOROSIS
     Route: 048
     Dates: start: 20050101, end: 20090701
  8. PREMARIN [Concomitant]
     Route: 065
  9. CELEBREX [Concomitant]
     Route: 048
     Dates: start: 19960101
  10. PROVERA [Concomitant]
     Route: 065
  11. FOSAMAX [Suspect]
     Route: 048
  12. VITAMINS (UNSPECIFIED) [Concomitant]
     Route: 048

REACTIONS (96)
  - ARTERIOSCLEROSIS CORONARY ARTERY [None]
  - SPINAL OSTEOARTHRITIS [None]
  - MUSCULOSKELETAL CHEST PAIN [None]
  - FIBULA FRACTURE [None]
  - FACE INJURY [None]
  - INSOMNIA [None]
  - ILEUS [None]
  - HYPERTENSION [None]
  - HYPOACUSIS [None]
  - MUSCLE STRAIN [None]
  - MITRAL VALVE INCOMPETENCE [None]
  - SJOGREN'S SYNDROME [None]
  - KYPHOSIS [None]
  - GOUTY ARTHRITIS [None]
  - SKELETAL INJURY [None]
  - LIMB CRUSHING INJURY [None]
  - CONTUSION [None]
  - COUGH [None]
  - NERVE COMPRESSION [None]
  - NECK PAIN [None]
  - MORTON'S NEUROMA [None]
  - CARDIAC MURMUR [None]
  - RHEUMATOID ARTHRITIS [None]
  - MEDIASTINAL DISORDER [None]
  - ANAEMIA [None]
  - ANGINA UNSTABLE [None]
  - CERVICAL MYELOPATHY [None]
  - CERVICAL SPINAL STENOSIS [None]
  - DYSPNOEA [None]
  - ADJUSTMENT DISORDER [None]
  - BALANCE DISORDER [None]
  - CHRONOTROPIC INCOMPETENCE [None]
  - MEMORY IMPAIRMENT [None]
  - FATIGUE [None]
  - VOMITING [None]
  - URINARY INCONTINENCE [None]
  - FRACTURED SACRUM [None]
  - INTESTINAL OBSTRUCTION [None]
  - HERNIA [None]
  - NOCTURIA [None]
  - JOINT DISLOCATION [None]
  - HAEMORRHOIDS [None]
  - EPISTAXIS [None]
  - ATRIOVENTRICULAR BLOCK SECOND DEGREE [None]
  - HUMERUS FRACTURE [None]
  - INCONTINENCE [None]
  - HERPES ZOSTER OPHTHALMIC [None]
  - NEUROLOGICAL SYMPTOM [None]
  - TENDON DISORDER [None]
  - WEIGHT INCREASED [None]
  - RESTRICTIVE PULMONARY DISEASE [None]
  - HEADACHE [None]
  - DEPRESSION [None]
  - COMPRESSION FRACTURE [None]
  - FACIAL BONES FRACTURE [None]
  - FRACTURE MALUNION [None]
  - EXCORIATION [None]
  - MUSCULAR WEAKNESS [None]
  - HERPES ZOSTER [None]
  - POOR DENTAL CONDITION [None]
  - OSTEOPOROTIC FRACTURE [None]
  - ORAL PAIN [None]
  - HEAD INJURY [None]
  - GASTRITIS [None]
  - DYSPNOEA EXERTIONAL [None]
  - BREAST DISORDER [None]
  - ADVERSE DRUG REACTION [None]
  - SICK SINUS SYNDROME [None]
  - BRONCHITIS [None]
  - HYPERCHOLESTEROLAEMIA [None]
  - HYPERHIDROSIS [None]
  - WEIGHT DECREASED [None]
  - CATARACT [None]
  - POST PROCEDURAL COMPLICATION [None]
  - JOINT INJURY [None]
  - MYOCARDIAL ISCHAEMIA [None]
  - GAIT DISTURBANCE [None]
  - DRY MOUTH [None]
  - DRUG INEFFECTIVE [None]
  - DRUG HYPERSENSITIVITY [None]
  - CARDIAC DISORDER [None]
  - FEMUR FRACTURE [None]
  - OSTEOARTHRITIS [None]
  - SPINAL CORD INJURY CERVICAL [None]
  - EXOSTOSIS [None]
  - CONFUSIONAL STATE [None]
  - FALL [None]
  - URTICARIA [None]
  - TOOTH DISORDER [None]
  - CATARACT NUCLEAR [None]
  - PNEUMONIA [None]
  - MACULAR DEGENERATION [None]
  - GOUT [None]
  - GASTROOESOPHAGEAL REFLUX DISEASE [None]
  - ATRIAL FIBRILLATION [None]
  - ANXIETY [None]
